FAERS Safety Report 7411824-0 (Version None)
Quarter: 2011Q2

REPORT INFORMATION
  Report Type: 
  Country: None (occurrence: None)
  Receive Date: 20110413
  Receipt Date: 20110331
  Transmission Date: 20111010
  Serious: Yes (Hospitalization, Other)
  Sender: FDA-Public Use
  Company Number: US-ELI_LILLY_AND_COMPANY-US201007007305

PATIENT
  Age: 51 Year
  Sex: Male

DRUGS (7)
  1. DILAUDID [Concomitant]
  2. FORTEO [Suspect]
     Indication: OSTEOPOROSIS
     Dosage: 20 UG, QD
     Dates: start: 20100801
  3. ENBREL [Concomitant]
  4. LYRICA [Concomitant]
  5. FORTEO [Suspect]
     Dosage: UNK, UNKNOWN
     Route: 065
  6. METHOTREXATE [Concomitant]
  7. PERCOCET [Concomitant]
     Dosage: 1 D/F, AS NEEDED

REACTIONS (8)
  - FIBROMYALGIA [None]
  - HIP FRACTURE [None]
  - MALAISE [None]
  - DRUG INEFFECTIVE [None]
  - DRUG DOSE OMISSION [None]
  - KIDNEY INFECTION [None]
  - INTERVERTEBRAL DISC DISORDER [None]
  - RHEUMATOID ARTHRITIS [None]
